FAERS Safety Report 6324676-7 (Version None)
Quarter: 2009Q3

REPORT INFORMATION
  Report Type: 
  Country: None (occurrence: None)
  Receive Date: 20090824
  Receipt Date: 20090501
  Transmission Date: 20100115
  Serious: No
  Sender: FDA-Public Use
  Company Number: US-ABBOTT-09P-163-0571034-00

PATIENT
  Sex: Female

DRUGS (3)
  1. NIASPAN [Suspect]
     Indication: DRUG USE FOR UNKNOWN INDICATION
     Dates: start: 20090401
  2. ALEVE [Concomitant]
     Indication: DRUG USE FOR UNKNOWN INDICATION
     Dosage: 2 TABLETS PRIOR TO NIASPAN
  3. CRESTOR [Concomitant]
     Indication: DRUG USE FOR UNKNOWN INDICATION
     Dosage: EVERY OTHER DAY

REACTIONS (1)
  - FLUSHING [None]
